FAERS Safety Report 20722459 (Version 1)
Quarter: 2022Q2

REPORT INFORMATION
  Report Type: Spontaneous
  Country: CN (occurrence: CN)
  Receive Date: 20220418
  Receipt Date: 20220418
  Transmission Date: 20220721
  Serious: No
  Sender: FDA-Public Use
  Company Number: CN-????????????-121

PATIENT
  Age: 51 None
  Sex: Male

DRUGS (1)
  1. AZITHROMYCIN [Suspect]
     Active Substance: AZITHROMYCIN
     Indication: Haemorrhage subcutaneous

REACTIONS (1)
  - Erythropoietin deficiency anaemia [Recovered/Resolved]

NARRATIVE: CASE EVENT DATE: 20220302
